FAERS Safety Report 12634945 (Version 3)
Quarter: 2016Q3

REPORT INFORMATION
  Report Type: Spontaneous
  Country: US (occurrence: US)
  Receive Date: 20160809
  Receipt Date: 20160922
  Transmission Date: 20161109
  Serious: No
  Sender: FDA-Public Use
  Company Number: US-PFIZER INC-2016350950

PATIENT
  Age: 58 Year
  Sex: Male

DRUGS (1)
  1. VIAGRA [Suspect]
     Active Substance: SILDENAFIL CITRATE
     Indication: MALE SEXUAL DYSFUNCTION
     Dosage: 50 MG, UNK
     Dates: start: 201607

REACTIONS (3)
  - Drug ineffective [Recovered/Resolved]
  - Feeling hot [Not Recovered/Not Resolved]
  - Erythema [Recovered/Resolved]
